FAERS Safety Report 23851319 (Version 3)
Quarter: 2024Q2

REPORT INFORMATION
  Report Type: Spontaneous
  Country: CA (occurrence: CA)
  Receive Date: 20240514
  Receipt Date: 20240531
  Transmission Date: 20240716
  Serious: Yes (Other)
  Sender: FDA-Public Use
  Company Number: CA-002147023-NVSC2024CA096638

PATIENT
  Age: 3 Year
  Sex: Female

DRUGS (3)
  1. TRILEPTAL [Suspect]
     Active Substance: OXCARBAZEPINE
     Indication: Seizure
     Dosage: 1 DOSAGE FORM, BID
     Route: 048
     Dates: start: 20230811
  2. VALPROIC ACID [Suspect]
     Active Substance: VALPROIC ACID
     Indication: Product used for unknown indication
     Dosage: UNK
     Route: 065
  3. CANNABIDIOL [Suspect]
     Active Substance: CANNABIDIOL
     Indication: Product used for unknown indication
     Dosage: 9 ML (CONTAINS 1 MG THC/MC)
     Route: 065

REACTIONS (2)
  - Seizure [Not Recovered/Not Resolved]
  - Drug ineffective [Unknown]

NARRATIVE: CASE EVENT DATE: 20240201
